FAERS Safety Report 20509827 (Version 3)
Quarter: 2022Q3

REPORT INFORMATION
  Report Type: Report from Study
  Country: US (occurrence: US)
  Receive Date: 20220224
  Receipt Date: 20220714
  Transmission Date: 20221026
  Serious: Yes (Hospitalization)
  Sender: FDA-Public Use
  Company Number: US-ACADIA PHARMACEUTICALS INC.-ACA-2022-PIM-000348

PATIENT
  Age: 72 Year
  Sex: Male

DRUGS (6)
  1. NUPLAZID [Suspect]
     Active Substance: PIMAVANSERIN TARTRATE
     Indication: Parkinson^s disease psychosis
     Dosage: 34 MILLIGRAM, QD
     Route: 048
     Dates: start: 202201, end: 2022
  2. NUPLAZID [Suspect]
     Active Substance: PIMAVANSERIN TARTRATE
     Indication: Hallucination
  3. NUPLAZID [Suspect]
     Active Substance: PIMAVANSERIN TARTRATE
     Indication: Delusion
  4. ONGENTYS [Suspect]
     Active Substance: OPICAPONE
  5. RYTARY [Concomitant]
     Active Substance: CARBIDOPA\LEVODOPA
  6. CLOZAPINE [Concomitant]
     Active Substance: CLOZAPINE

REACTIONS (11)
  - Delusion [Unknown]
  - Hallucination [Unknown]
  - Condition aggravated [Unknown]
  - Head injury [Unknown]
  - Fatigue [Unknown]
  - Hypersomnia [Unknown]
  - Gastrooesophageal reflux disease [Unknown]
  - Feeling abnormal [Unknown]
  - Anxiety [Unknown]
  - Dyspnoea [Unknown]
  - Fall [Unknown]

NARRATIVE: CASE EVENT DATE: 20220101
